FAERS Safety Report 5055314-1 (Version None)
Quarter: 2006Q3

REPORT INFORMATION
  Report Type: 
  Country: None (occurrence: None)
  Receive Date: 20060719
  Receipt Date: 20060718
  Transmission Date: 20061208
  Serious: Yes (Other)
  Sender: FDA-Public Use
  Company Number: 200613844EU

PATIENT
  Sex: Female

DRUGS (1)
  1. NICORETTE [Suspect]
     Route: 002
     Dates: start: 20060622

REACTIONS (1)
  - DEPENDENCE [None]
